FAERS Safety Report 8683757 (Version 2)
Quarter: 2012Q4

REPORT INFORMATION
  Report Type: 
  Country: BR (occurrence: BR)
  Receive Date: 20120726
  Receipt Date: 20120829
  Transmission Date: 20130627
  Serious: Yes (Hospitalization)
  Sender: FDA-Public Use
  Company Number: PHHY2012BR063397

PATIENT
  Age: 48 Year
  Sex: Female

DRUGS (4)
  1. RIFAMPICIN [Suspect]
     Indication: LEPROSY
  2. CLOFAZIMINE [Suspect]
     Indication: LEPROSY
  3. DAPSONE [Suspect]
     Indication: LEPROSY
  4. DIPYRONE [Concomitant]

REACTIONS (6)
  - Toxic epidermal necrolysis [Recovered/Resolved]
  - Blister [Recovered/Resolved]
  - Skin disorder [Recovered/Resolved]
  - Genital ulceration [Recovered/Resolved]
  - Dermatitis bullous [Recovered/Resolved]
  - Mucosal ulceration [Recovered/Resolved]
